FAERS Safety Report 7628939-4 (Version None)
Quarter: 2011Q3

REPORT INFORMATION
  Report Type: 
  Country: None (occurrence: None)
  Receive Date: 20110715
  Receipt Date: 20110701
  Transmission Date: 20111222
  Serious: Yes (Life-Threatening, Other)
  Sender: FDA-Public Use
  Company Number: 2011AP001378

PATIENT
  Age: 85 Year
  Sex: Female

DRUGS (6)
  1. BUDESONIDE [Concomitant]
  2. TIOTROPIUM BROMIDE (TIOTROPIUM BROMIDE) [Concomitant]
  3. ALENDRONATE SODIUM [Suspect]
     Indication: OSTEOPOROSIS
     Dosage: 70 MG; PO
     Route: 048
     Dates: start: 20080101, end: 20110606
  4. OMEPRAZOLE [Concomitant]
  5. METOCLOPRAMIDE [Concomitant]
  6. FORMOTEROL (FORMOTEROL) [Concomitant]

REACTIONS (1)
  - TRACHEO-OESOPHAGEAL FISTULA [None]
